FAERS Safety Report 8557999-1 (Version None)
Quarter: 2012Q3

REPORT INFORMATION
  Report Type: 
  Country: None (occurrence: None)
  Receive Date: 20120801
  Receipt Date: 20120727
  Transmission Date: 20120928
  Serious: Yes (Other)
  Sender: FDA-Public Use
  Company Number: AU-BRISTOL-MYERS SQUIBB COMPANY-16682304

PATIENT
  Age: 39 Year
  Sex: Female
  Weight: 57 kg

DRUGS (5)
  1. ORENCIA [Suspect]
     Indication: RHEUMATOID ARTHRITIS
     Route: 042
     Dates: start: 20111011
  2. NEXIUM [Concomitant]
  3. LIPITOR [Concomitant]
  4. CELEBREX [Concomitant]
  5. ENDEP [Concomitant]

REACTIONS (1)
  - OVARIAN GERM CELL TERATOMA BENIGN [None]
